FAERS Safety Report 24751571 (Version 1)
Quarter: 2024Q4

REPORT INFORMATION
  Report Type: Spontaneous
  Country: US (occurrence: US)
  Receive Date: 20241219
  Receipt Date: 20241219
  Transmission Date: 20250115
  Serious: No
  Sender: SANOFI AVENTIS
  Company Number: US-SA-2024SA372094

PATIENT
  Age: 63 Year
  Sex: Female

DRUGS (1)
  1. DUPIXENT [Suspect]
     Active Substance: DUPILUMAB
     Indication: Palmoplantar pustulosis
     Dosage: 300 MG, QOW
     Route: 058
     Dates: start: 2022

REACTIONS (1)
  - Drug effective for unapproved indication [Unknown]
